FAERS Safety Report 8761863 (Version 2)
Quarter: 2012Q4

REPORT INFORMATION
  Report Type: Spontaneous
  Country: US (occurrence: None)
  Receive Date: 20120822
  Receipt Date: 20120906
  Transmission Date: 20130627
  Serious: Yes (Other)
  Sender: FDA-Public Use
  Company Number: JPI-P-024022

PATIENT
  Age: 34 Year
  Sex: Male

DRUGS (2)
  1. XYREM (500 MILLIGRAM/MILLILITERS, SOLUTION) (SODIUM OXYBATE) [Suspect]
     Indication: INSOMNIA
     Dosage: 5 gm (2.5 gm, 2 in 1 D), Oral
     Route: 048
     Dates: start: 20080407
  2. XYREM (500 MILLIGRAM/MILLILITERS, SOLUTION) (SODIUM OXYBATE) [Suspect]
     Indication: INSOMNIA
     Dosage: 9 gm (4.5 gm, 2 in 1 D), Oral
     Route: 048
     Dates: start: 20080415

REACTIONS (11)
  - Post-traumatic stress disorder [None]
  - Acute stress disorder [None]
  - Victim of crime [None]
  - Disturbance in attention [None]
  - Irritability [None]
  - Hypervigilance [None]
  - Decreased appetite [None]
  - Dissociative disorder [None]
  - Depersonalisation [None]
  - Stab wound [None]
  - Fear [None]
